FAERS Safety Report 12365530 (Version 1)
Quarter: 2016Q2

REPORT INFORMATION
  Report Type: Spontaneous
  Country: IT (occurrence: IT)
  Receive Date: 20160512
  Receipt Date: 20160512
  Transmission Date: 20160815
  Serious: Yes (Other)
  Sender: FDA-Public Use
  Company Number: PHHY2016IT063637

PATIENT
  Age: 20 Year
  Sex: Male

DRUGS (1)
  1. AMOXICILLIN+CLAVULANATE [Suspect]
     Active Substance: AMOXICILLIN\CLAVULANATE POTASSIUM
     Indication: INFLUENZA
     Dosage: 1 DF, QD
     Route: 048
     Dates: start: 20150312, end: 20150312

REACTIONS (1)
  - Palatal oedema [Recovering/Resolving]

NARRATIVE: CASE EVENT DATE: 20150312
